FAERS Safety Report 8972033 (Version 2)
Quarter: 2013Q2

REPORT INFORMATION
  Report Type: Report from Study
  Country: US (occurrence: US)
  Receive Date: 20121218
  Receipt Date: 20130531
  Transmission Date: 20140414
  Serious: Yes (Other)
  Sender: FDA-Public Use
  Company Number: US-US-EMD SERONO, INC.-7181820

PATIENT
  Sex: Female
  Weight: 73 kg

DRUGS (3)
  1. REBIF [Suspect]
     Indication: PRODUCT USED FOR UNKNOWN INDICATION
     Route: 058
     Dates: start: 20030707, end: 20030821
  2. REBIF [Suspect]
     Route: 058
     Dates: start: 20031017
  3. REBIF [Suspect]
     Route: 058
     Dates: start: 201208, end: 201212

REACTIONS (6)
  - Hepatic cirrhosis [Not Recovered/Not Resolved]
  - Hepatic failure [Not Recovered/Not Resolved]
  - Hepatic steatosis [Not Recovered/Not Resolved]
  - Cyst [Not Recovered/Not Resolved]
  - Memory impairment [Not Recovered/Not Resolved]
  - Mobility decreased [Not Recovered/Not Resolved]
